FAERS Safety Report 8808454 (Version 1)
Quarter: 2012Q4

REPORT INFORMATION
  Report Type: Spontaneous
  Country: US (occurrence: None)
  Receive Date: 20120919
  Receipt Date: 20120919
  Transmission Date: 20130627
  Serious: Yes (Death, Life-Threatening, Other)
  Sender: FDA-Public Use
  Company Number: DSA_59397_2012

PATIENT
  Age: 65 Year
  Sex: Male
  Weight: 116.58 kg

DRUGS (1)
  1. VASOTEC [Suspect]
     Indication: ESSENTIAL HYPERTENSION
     Dosage: df oral
     Route: 048

REACTIONS (4)
  - Asphyxia [None]
  - Angioedema [None]
  - Respiratory tract oedema [None]
  - Asphyxia [None]
